FAERS Safety Report 6857150-X (Version None)
Quarter: 2010Q3

REPORT INFORMATION
  Report Type: 
  Country: None (occurrence: None)
  Receive Date: 20100719
  Receipt Date: 20100712
  Transmission Date: 20110219
  Serious: Yes (Hospitalization)
  Sender: FDA-Public Use
  Company Number: Z0004890A

PATIENT
  Sex: Female
  Weight: 49 kg

DRUGS (1)
  1. PAZOPANIB [Suspect]
     Indication: OVARIAN CANCER
     Dosage: 800MG PER DAY
     Route: 048
     Dates: start: 20100625

REACTIONS (6)
  - ABDOMINAL PAIN UPPER [None]
  - BRADYCARDIA [None]
  - HYPERBILIRUBINAEMIA [None]
  - HYPERTENSION [None]
  - NAUSEA [None]
  - THROMBOCYTOPENIA [None]
